FAERS Safety Report 6635668-2 (Version None)
Quarter: 2010Q1

REPORT INFORMATION
  Report Type: 
  Country: None (occurrence: None)
  Receive Date: 20100315
  Receipt Date: 20100308
  Transmission Date: 20100710
  Serious: Yes (Other)
  Sender: FDA-Public Use
  Company Number: US-AMGEN-QUU397968

PATIENT
  Sex: Female

DRUGS (5)
  1. NEUPOGEN [Suspect]
     Indication: CHEMOTHERAPY
     Dates: start: 20100205
  2. TAXOL [Concomitant]
  3. CARBOPLATIN [Concomitant]
  4. COUMADIN [Concomitant]
     Dates: start: 20010101
  5. CARDIAC MEDICATION NOS [Concomitant]

REACTIONS (3)
  - DRUG INEFFECTIVE [None]
  - INTERNATIONAL NORMALISED RATIO ABNORMAL [None]
  - THROMBOPHLEBITIS [None]
